FAERS Safety Report 18721766 (Version 1)
Quarter: 2021Q1

REPORT INFORMATION
  Report Type: Spontaneous
  Country: CA (occurrence: CA)
  Receive Date: 20210110
  Receipt Date: 20210110
  Transmission Date: 20210419
  Serious: Yes (Other)
  Sender: FDA-Public Use
  Company Number: CA-JNJFOC-20210108562

PATIENT
  Age: 58 Year
  Sex: Male

DRUGS (7)
  1. VITAMIN B12 [Concomitant]
     Active Substance: CYANOCOBALAMIN
  2. IRON [Concomitant]
     Active Substance: IRON
     Route: 042
  3. VALPROATE SODIUM. [Concomitant]
     Active Substance: VALPROATE SODIUM
  4. REMICADE [Suspect]
     Active Substance: INFLIXIMAB
     Indication: CROHN^S DISEASE
     Route: 042
  5. PREDNISONE. [Concomitant]
     Active Substance: PREDNISONE
     Indication: CONDITION AGGRAVATED
  6. LEVOTHYROXINE SODIUM. [Concomitant]
     Active Substance: LEVOTHYROXINE SODIUM
  7. CLONAZEPAM. [Concomitant]
     Active Substance: CLONAZEPAM
     Route: 065

REACTIONS (10)
  - Rectal haemorrhage [Unknown]
  - Condition aggravated [Unknown]
  - Off label use [Unknown]
  - Heart rate decreased [Unknown]
  - Autoimmune arthritis [Unknown]
  - Ear infection [Unknown]
  - Intentional product use issue [Unknown]
  - Arthralgia [Unknown]
  - Blood pressure fluctuation [Unknown]
  - Faecal calprotectin decreased [Unknown]
